FAERS Safety Report 9374688 (Version 1)
Quarter: 2013Q2

REPORT INFORMATION
  Report Type: Spontaneous
  Country: CA (occurrence: CA)
  Receive Date: 20130628
  Receipt Date: 20130628
  Transmission Date: 20140414
  Serious: Yes (Death, Hospitalization)
  Sender: FDA-Public Use
  Company Number: CA-MPIJNJ-2012-00697

PATIENT
  Sex: 0

DRUGS (20)
  1. VELCADE [Suspect]
     Indication: PLASMA CELL MYELOMA
     Dosage: 3 MG, 1/WEEK
     Route: 042
     Dates: start: 20111224, end: 20111231
  2. DEXAMETHASONE [Concomitant]
     Dosage: 10 MG, 1/WEEK
     Dates: start: 20100908, end: 201112
  3. LENALIDOMIDE [Concomitant]
     Dosage: 25 MG, QD
     Route: 048
     Dates: start: 20100908, end: 201112
  4. CYCLOPHOSPHAMIDE [Concomitant]
     Dosage: 500 MG, CYCLIC
     Route: 048
     Dates: start: 20111224, end: 20120105
  5. PREDNISONE [Concomitant]
     Dosage: 25 MG, CYCLIC
     Dates: start: 20120113, end: 20120113
  6. PREDNISONE [Concomitant]
     Dosage: 12.5 MG, UNK
     Dates: start: 20120115, end: 20120117
  7. PREDNISONE [Concomitant]
     Dosage: 10 MG, CYCLIC
     Dates: start: 20120119, end: 20120121
  8. VALTREX [Concomitant]
     Indication: PROPHYLAXIS
     Dosage: 500 MG, BID
     Dates: start: 20111224, end: 20120118
  9. ATORVASTATIN [Concomitant]
     Indication: HYPERCHOLESTEROLAEMIA
     Dosage: 20 MG, UNK
     Route: 048
     Dates: end: 20120118
  10. PANTOLOC                           /01263201/ [Concomitant]
     Indication: GASTROOESOPHAGEAL REFLUX DISEASE
     Dosage: 40 MG, QD
     Dates: end: 20120121
  11. ACIDOPHILUS [Concomitant]
     Dosage: UNK
     Route: 048
     Dates: end: 20111223
  12. PAMIDRONATE [Concomitant]
     Dosage: 90 MG, MONTHLY
     Route: 042
  13. CALCIUM [Concomitant]
     Dosage: UNK
     Dates: start: 20120118
  14. VITAMIN D                          /00107901/ [Concomitant]
  15. GABAPENTIN [Concomitant]
     Dosage: 300 MG, TID
     Route: 048
     Dates: start: 20120121
  16. LANTUS [Concomitant]
     Indication: DIABETES MELLITUS
     Dosage: UNK
     Route: 058
     Dates: end: 20120113
  17. HUMALOG                            /00030501/ [Concomitant]
     Indication: DIABETES MELLITUS
  18. TINZAPARIN [Concomitant]
     Dosage: UNK
     Route: 058
     Dates: start: 20111221, end: 20120105
  19. ASA [Concomitant]
     Route: 048
  20. LIPITOR [Concomitant]
     Dosage: UNK

REACTIONS (2)
  - Cardiac failure [Not Recovered/Not Resolved]
  - Plasma cell myeloma [Fatal]
